FAERS Safety Report 12204248 (Version 2)
Quarter: 2016Q2

REPORT INFORMATION
  Report Type: Report from Study
  Country: GB (occurrence: GB)
  Receive Date: 20160323
  Receipt Date: 20160419
  Transmission Date: 20160815
  Serious: Yes (Other)
  Sender: FDA-Public Use
  Company Number: GB-ROCHE-1574595

PATIENT
  Age: 49 Year
  Sex: Male
  Weight: 71.2 kg

DRUGS (13)
  1. RITUXIMAB [Suspect]
     Active Substance: RITUXIMAB
     Indication: NON-HODGKIN^S LYMPHOMA
     Dosage: VOLUME OF LAST RITUXIMAB TAKEN: 500 ML?DOSE CONCENTRATION OF LAST RITUXIMAB TAKEN 750 MG/ML?MOST REC
     Route: 042
     Dates: start: 20130328
  2. VALACICLOVIR [Concomitant]
     Active Substance: VALACYCLOVIR HYDROCHLORIDE
     Indication: HERPES ZOSTER
     Route: 065
     Dates: start: 20130612
  3. ACICLOVIR [Concomitant]
     Active Substance: ACYCLOVIR
     Route: 065
     Dates: start: 20130626
  4. PARACETAMOL [Concomitant]
     Active Substance: ACETAMINOPHEN
     Indication: HEADACHE
     Route: 065
     Dates: start: 20130328
  5. ERYTHROMYCIN. [Concomitant]
     Active Substance: ERYTHROMYCIN
     Indication: INFLUENZA LIKE ILLNESS
     Route: 065
     Dates: start: 20150211, end: 20150218
  6. LORATADINE. [Concomitant]
     Active Substance: LORATADINE
     Indication: NEURALGIA
     Route: 065
     Dates: start: 20130723
  7. ALLOPURINOL. [Concomitant]
     Active Substance: ALLOPURINOL
     Indication: GOUT
     Route: 065
     Dates: start: 20130328, end: 201306
  8. METOCLOPRAMIDE. [Concomitant]
     Active Substance: METOCLOPRAMIDE
     Indication: NAUSEA
     Route: 065
     Dates: start: 20130328
  9. AUGMENTIN [Concomitant]
     Active Substance: AMOXICILLIN\CLAVULANATE POTASSIUM
     Indication: LOWER RESPIRATORY TRACT INFECTION
     Route: 065
     Dates: start: 20131108, end: 201311
  10. BENDAMUSTINE [Suspect]
     Active Substance: BENDAMUSTINE
     Indication: NON-HODGKIN^S LYMPHOMA
     Dosage: MOST RECENT DOSE (180 MG) OF BENDAMUSTINE PRIOR TO AE ONSET 22/AUG/ 2013
     Route: 042
     Dates: start: 20130328
  11. GABAPENTIN. [Concomitant]
     Active Substance: GABAPENTIN
     Indication: PAIN
     Route: 065
     Dates: start: 20130625, end: 201309
  12. CHLORPHENAMINE [Concomitant]
     Active Substance: CHLORPHENIRAMINE MALEATE
     Route: 065
     Dates: start: 20130328
  13. DAKTARIN [Concomitant]
     Active Substance: MICONAZOLE NITRATE
     Indication: FUNGAL SKIN INFECTION
     Route: 065
     Dates: start: 20140910

REACTIONS (1)
  - Pneumonia [Not Recovered/Not Resolved]

NARRATIVE: CASE EVENT DATE: 20150304
